FAERS Safety Report 22355602 (Version 1)
Quarter: 2023Q2

REPORT INFORMATION
  Report Type: Spontaneous
  Country: US (occurrence: None)
  Receive Date: 20230523
  Receipt Date: 20230523
  Transmission Date: 20230721
  Serious: Yes (Life-Threatening, Hospitalization)
  Sender: FDA-Public Use
  Company Number: None

PATIENT
  Age: 97 Year
  Sex: Female
  Weight: 57 kg

DRUGS (2)
  1. PAXLOVID [Suspect]
     Active Substance: NIRMATRELVIR\RITONAVIR
     Indication: COVID-19
     Dates: start: 20230517, end: 20230519
  2. AMIODARONE [Concomitant]
     Active Substance: AMIODARONE

REACTIONS (3)
  - Acute kidney injury [None]
  - Hyponatraemia [None]
  - Bradycardia [None]

NARRATIVE: CASE EVENT DATE: 20230517
